FAERS Safety Report 12633042 (Version 2)
Quarter: 2016Q3

REPORT INFORMATION
  Report Type: Spontaneous
  Country: US (occurrence: US)
  Receive Date: 20160808
  Receipt Date: 20160808
  Transmission Date: 20161109
  Serious: No
  Sender: FDA-Public Use
  Company Number: US-BEH-2016058253

PATIENT
  Sex: Male
  Weight: 73 kg

DRUGS (18)
  1. HIZENTRA [Suspect]
     Active Substance: HUMAN IMMUNOGLOBULIN G
     Indication: IMMUNODEFICIENCY COMMON VARIABLE
     Route: 058
     Dates: start: 20150929
  2. FUROSEMIDE. [Concomitant]
     Active Substance: FUROSEMIDE
  3. DIPHENHYDRAMINE. [Concomitant]
     Active Substance: DIPHENHYDRAMINE
  4. ASPIRIN. [Concomitant]
     Active Substance: ASPIRIN
  5. STOOL SOFTENER [Concomitant]
     Active Substance: DOCUSATE CALCIUM
  6. BUDESONIDE. [Concomitant]
     Active Substance: BUDESONIDE
  7. MULTIVITAMIN [Concomitant]
     Active Substance: VITAMINS
  8. BENADRYL [Concomitant]
     Active Substance: DIPHENHYDRAMINE HYDROCHLORIDE
  9. HYDROCODONE [Concomitant]
     Active Substance: HYDROCODONE
  10. VITAMIN B [Concomitant]
     Active Substance: VITAMIN B
  11. EPIPEN [Concomitant]
     Active Substance: EPINEPHRINE
  12. ZOLPIDEM [Concomitant]
     Active Substance: ZOLPIDEM\ZOLPIDEM TARTRATE
  13. CRESTOR [Concomitant]
     Active Substance: ROSUVASTATIN CALCIUM
  14. ACETAMINOPHEN. [Concomitant]
     Active Substance: ACETAMINOPHEN
  15. LOSARTAN. [Concomitant]
     Active Substance: LOSARTAN
  16. LIDOCAINE. [Concomitant]
     Active Substance: LIDOCAINE
  17. SPIRONOLACTONE. [Concomitant]
     Active Substance: SPIRONOLACTONE
  18. TORASEMIDE [Concomitant]
     Active Substance: TORSEMIDE

REACTIONS (3)
  - Flatulence [Unknown]
  - Weight increased [Unknown]
  - Abdominal discomfort [Unknown]
